FAERS Safety Report 5793114-5 (Version None)
Quarter: 2008Q2

REPORT INFORMATION
  Report Type: 
  Country: None (occurrence: None)
  Receive Date: 20080627
  Receipt Date: 20080408
  Transmission Date: 20081010
  Serious: No
  Sender: FDA-Public Use
  Company Number: A0617111A

PATIENT
  Sex: Female

DRUGS (6)
  1. FLOVENT [Suspect]
     Indication: ASTHMA
     Dosage: 1PUFF TWICE PER DAY
     Route: 055
     Dates: start: 20050101, end: 20080301
  2. ADVAIR DISKUS 100/50 [Suspect]
     Indication: DRUG USE FOR UNKNOWN INDICATION
     Route: 055
  3. ATENOLOL [Concomitant]
  4. SINGULAIR [Concomitant]
  5. COUMADIN [Concomitant]
  6. DILTIAZEM HCL [Concomitant]

REACTIONS (6)
  - ADVERSE EVENT [None]
  - ARTHRALGIA [None]
  - BONE PAIN [None]
  - EYE PAIN [None]
  - JOINT SWELLING [None]
  - MUSCLE SPASMS [None]
